FAERS Safety Report 5901796-X (Version None)
Quarter: 2008Q3

REPORT INFORMATION
  Report Type: 
  Country: None (occurrence: None)
  Receive Date: 20080925
  Receipt Date: 20080916
  Transmission Date: 20090109
  Serious: Yes (Hospitalization)
  Sender: FDA-Public Use
  Company Number: 2008AL003522

PATIENT
  Age: 79 Year
  Sex: Female
  Weight: 74.3899 kg

DRUGS (12)
  1. DIGOXIN [Suspect]
     Indication: ATRIAL FIBRILLATION
     Dosage: 0.125MG, DAILY, PO
     Route: 048
     Dates: start: 20080201, end: 20080601
  2. ASPIRIN [Concomitant]
  3. PLAVIX [Concomitant]
  4. AMARYL [Concomitant]
  5. COREG [Concomitant]
  6. FUROSEMIDE [Concomitant]
  7. POTASSIUM CHLORIDE [Concomitant]
  8. ENALAPRIL MALEATE [Concomitant]
  9. COUMADIN [Concomitant]
  10. TORSEMIDE [Concomitant]
  11. POTASSIUM CHLORIDE [Concomitant]
  12. MULTI-VITAMIN [Concomitant]

REACTIONS (5)
  - CARDIAC PACEMAKER INSERTION [None]
  - FATIGUE [None]
  - HEART RATE DECREASED [None]
  - MALAISE [None]
  - NAUSEA [None]
